FAERS Safety Report 11969112 (Version 1)
Quarter: 2016Q1

REPORT INFORMATION
  Report Type: Spontaneous
  Country: US (occurrence: None)
  Receive Date: 20160126
  Receipt Date: 20160126
  Transmission Date: 20160526
  Serious: No
  Sender: FDA-Public Use
  Company Number: None

PATIENT
  Age: 66 Year
  Sex: Female

DRUGS (5)
  1. LYRICA [Concomitant]
     Active Substance: PREGABALIN
  2. FENTANYL. [Concomitant]
     Active Substance: FENTANYL
  3. APAP/CODEIN SOLUTION [Concomitant]
  4. SUTENT [Suspect]
     Active Substance: SUNITINIB MALATE
     Indication: NEOPLASM MALIGNANT
     Dosage: 1 WD FOR 4 WEEKS THEN EVERY 6 WEEKS, PO
     Route: 048
     Dates: start: 201511
  5. ZOLPIDEM [Concomitant]
     Active Substance: ZOLPIDEM\ZOLPIDEM TARTRATE

REACTIONS (3)
  - Skin exfoliation [None]
  - Dry mouth [None]
  - Skin ulcer [None]

NARRATIVE: CASE EVENT DATE: 201601
